FAERS Safety Report 6829282-3 (Version None)
Quarter: 2010Q3

REPORT INFORMATION
  Report Type: 
  Country: None (occurrence: None)
  Receive Date: 20100709
  Receipt Date: 20070307
  Transmission Date: 20110219
  Serious: No
  Sender: FDA-Public Use
  Company Number: US-PFIZER INC-2007019516

PATIENT
  Sex: Female
  Weight: 72.12 kg

DRUGS (11)
  1. CHANTIX [Suspect]
     Indication: SMOKING CESSATION THERAPY
     Dates: start: 20070218
  2. EFFEXOR [Concomitant]
  3. AMANTADINE HCL [Concomitant]
  4. XANAX [Concomitant]
  5. OSCAL 500-D [Concomitant]
  6. CENTRUM [Concomitant]
  7. EFFEXOR XR [Concomitant]
  8. GEODON [Concomitant]
  9. LIPITOR [Concomitant]
  10. GABITRIL [Concomitant]
  11. FEMARA [Concomitant]

REACTIONS (2)
  - DIARRHOEA [None]
  - FLATULENCE [None]
